FAERS Safety Report 12436924 (Version 1)
Quarter: 2016Q2

REPORT INFORMATION
  Report Type: Spontaneous
  Country: FR (occurrence: FR)
  Receive Date: 20160606
  Receipt Date: 20160606
  Transmission Date: 20160815
  Serious: Yes (Hospitalization, Other)
  Sender: FDA-Public Use
  Company Number: FR-BAXTER-2016BAX028042

PATIENT
  Age: 63 Year
  Sex: Female

DRUGS (16)
  1. ENDOXAN 1000 MG, POUDRE POUR SOLUTION INJECTABLE [Suspect]
     Active Substance: CYCLOPHOSPHAMIDE
     Indication: CHEMOTHERAPY
     Dosage: DAY 3
     Route: 042
     Dates: start: 20160327, end: 20160327
  2. FLUDARABINE TEVA [Suspect]
     Active Substance: FLUDARABINE PHOSPHATE
     Indication: CHEMOTHERAPY
     Dosage: SOLUTION TO DILUTE FOR INJECTION OR INFUSION, CONDITIONING COURSE FOR 4 DAYS
     Route: 042
     Dates: start: 20160317
  3. CELLCEPT [Suspect]
     Active Substance: MYCOPHENOLATE MOFETIL\MYCOPHENOLATE MOFETIL HYDROCHLORIDE
     Indication: PROPHYLAXIS AGAINST TRANSPLANT REJECTION
     Route: 042
     Dates: start: 20160330, end: 20160420
  4. CYTARABINE. [Suspect]
     Active Substance: CYTARABINE
     Indication: ACUTE MYELOID LEUKAEMIA
     Dosage: INDUCTION CHEMOTHERAPY COURSE
     Route: 065
  5. TEPADINA [Suspect]
     Active Substance: THIOTEPA
     Indication: BONE MARROW CONDITIONING REGIMEN
  6. IDARUBICIN [Suspect]
     Active Substance: IDARUBICIN
     Indication: ACUTE MYELOID LEUKAEMIA
     Dosage: INDUCTION CHEMOTHERAPY COURSE
     Route: 065
  7. CYTARABINE. [Suspect]
     Active Substance: CYTARABINE
     Dosage: CONSOLIDATION COURSE
     Route: 065
  8. CICLOSPORINE [Suspect]
     Active Substance: CYCLOSPORINE
     Indication: PRODUCT USED FOR UNKNOWN INDICATION
     Route: 065
  9. FLUDARABINE TEVA [Suspect]
     Active Substance: FLUDARABINE PHOSPHATE
     Indication: BONE MARROW CONDITIONING REGIMEN
     Dosage: SOLUTION TO DILUTE FOR INJECTION OR INFUSION
     Route: 042
     Dates: end: 20160520
  10. BUSILVEX [Suspect]
     Active Substance: BUSULFAN
     Indication: BONE MARROW CONDITIONING REGIMEN
  11. ZOVIRAX [Suspect]
     Active Substance: ACYCLOVIR
     Indication: ANTIVIRAL PROPHYLAXIS
     Route: 042
     Dates: start: 20160328, end: 20160419
  12. CEFTAZIDIME PANPHARMA [Suspect]
     Active Substance: CEFTAZIDIME
     Indication: ANTIBIOTIC PROPHYLAXIS
     Dosage: THRICE
     Route: 042
     Dates: start: 20160325, end: 20160429
  13. BUSILVEX [Suspect]
     Active Substance: BUSULFAN
     Indication: CHEMOTHERAPY
     Dosage: SOLUTION TO DILUTE FOR INFUSION, CONDITIONING COURSE
     Route: 042
     Dates: start: 20160320, end: 20160321
  14. ENDOXAN 1000 MG, POUDRE POUR SOLUTION INJECTABLE [Suspect]
     Active Substance: CYCLOPHOSPHAMIDE
     Dosage: DAY 5
     Route: 042
     Dates: start: 20160329, end: 20160329
  15. TEPADINA [Suspect]
     Active Substance: THIOTEPA
     Indication: CHEMOTHERAPY
     Dosage: CONDITIONING COURSE
     Route: 042
     Dates: start: 20160318, end: 20160318
  16. BELUSTINE [Suspect]
     Active Substance: LOMUSTINE
     Indication: ACUTE MYELOID LEUKAEMIA
     Dosage: INDUCTION CHEMOTHERAPY COURSE
     Route: 065

REACTIONS (3)
  - Pyramidal tract syndrome [Unknown]
  - Encephalopathy [Not Recovered/Not Resolved]
  - Extrapyramidal disorder [Unknown]

NARRATIVE: CASE EVENT DATE: 20160406
